FAERS Safety Report 16142050 (Version 1)
Quarter: 2019Q2

REPORT INFORMATION
  Report Type: Spontaneous
  Country: HR (occurrence: HR)
  Receive Date: 20190401
  Receipt Date: 20190401
  Transmission Date: 20190711
  Serious: Yes (Hospitalization, Other)
  Sender: FDA-Public Use
  Company Number: HR-PFIZER INC-2019136892

PATIENT
  Sex: Female

DRUGS (7)
  1. MEDROL [Suspect]
     Active Substance: METHYLPREDNISOLONE
     Indication: ARTHRALGIA
     Dosage: UNK
     Route: 065
  2. MEDROL [Suspect]
     Active Substance: METHYLPREDNISOLONE
     Indication: HEPATIC NECROSIS
     Dosage: UNK (GRADUAL DOSE REDUCTION)
     Route: 065
  3. IMURAN [Suspect]
     Active Substance: AZATHIOPRINE
     Indication: HEPATIC NECROSIS
     Dosage: 50 MG, UNK
     Route: 065
  4. URSOFALK [Suspect]
     Active Substance: URSODIOL
     Indication: ARTHRALGIA
     Dosage: 2 DF, 2X/DAY
     Route: 065
  5. VEDOLIZUMAB [Suspect]
     Active Substance: VEDOLIZUMAB
     Dosage: UNK (0.?1.?2. DOSE IN TOTAL)
     Route: 065
     Dates: start: 201611
  6. METHOTREXATE. [Suspect]
     Active Substance: METHOTREXATE
     Indication: ARTHRALGIA
     Dosage: 7.5 MG, WEEKLY
     Route: 065
     Dates: start: 201611, end: 201701
  7. SALOFALK [MESALAZINE] [Suspect]
     Active Substance: MESALAMINE
     Indication: ARTHRALGIA
     Dosage: UNK
     Route: 065

REACTIONS (11)
  - Splenomegaly [Unknown]
  - Influenza [Unknown]
  - Alanine aminotransferase increased [Unknown]
  - Body temperature increased [Unknown]
  - Hepatic necrosis [Unknown]
  - Pneumonitis [Unknown]
  - Gamma-glutamyltransferase increased [Unknown]
  - Arthralgia [Not Recovered/Not Resolved]
  - Hepatic fibrosis [Unknown]
  - Aspartate aminotransferase increased [Unknown]
  - Pneumonia [Unknown]

NARRATIVE: CASE EVENT DATE: 201611
